FAERS Safety Report 9114979 (Version 1)
Quarter: 2013Q1

REPORT INFORMATION
  Report Type: Spontaneous
  Country: DK (occurrence: None)
  Receive Date: 20130125
  Receipt Date: 20130125
  Transmission Date: 20140127
  Serious: No
  Sender: FDA-Public Use
  Company Number: 2013MA000670

PATIENT
  Sex: Female

DRUGS (2)
  1. METFORMIN HYDROCHLORIDE EXTENDED-RELEASE TABLETS, 500 MG (PUREPAC) (METFORMIN HYDROCHLORIDE) [Suspect]
     Indication: PRODUCT USED FOR UNKNOWN INDICATION
  2. GLICLAZIDE (GLICLAZIDE) [Suspect]
     Indication: PRODUCT USED FOR UNKNOWN INDICATION

REACTIONS (4)
  - Chest pain [None]
  - Dysstasia [None]
  - Dyspnoea [None]
  - Vomiting [None]
